FAERS Safety Report 15745923 (Version 1)
Quarter: 2018Q4

REPORT INFORMATION
  Report Type: Report from Study
  Country: US (occurrence: US)
  Receive Date: 20181220
  Receipt Date: 20181220
  Transmission Date: 20190205
  Serious: No
  Sender: FDA-Public Use
  Company Number: US-INDIVIOR LIMITED-INDV-114667-2018

PATIENT
  Age: 29 Year
  Sex: Male

DRUGS (5)
  1. PAXIL [Concomitant]
     Active Substance: PAROXETINE HYDROCHLORIDE
     Indication: DEPRESSION
     Dosage: 20 MG, UNK
     Route: 065
     Dates: start: 20180602
  2. SUBLOCADE [Suspect]
     Active Substance: BUPRENORPHINE
     Indication: DRUG DEPENDENCE
     Dosage: 300MG, QMO (1ST AND 2ND INJECTION)
     Route: 058
     Dates: start: 20180703, end: 20180731
  3. SUBLOCADE [Suspect]
     Active Substance: BUPRENORPHINE
     Dosage: 300 MG, QMO  (3RD INJECTION)
     Route: 058
     Dates: start: 20180828, end: 201809
  4. SUBLOCADE [Suspect]
     Active Substance: BUPRENORPHINE
     Dosage: 300 MG, QMO (4TH INJECTION)
     Route: 058
     Dates: start: 20180925
  5. REMERON [Concomitant]
     Active Substance: MIRTAZAPINE
     Indication: INSOMNIA
     Dosage: 15 MG, UNK
     Route: 065
     Dates: start: 20180602

REACTIONS (3)
  - Drug delivery system removal [Recovered/Resolved]
  - Injection site infection [Recovered/Resolved]
  - Injection site pain [Recovered/Resolved]

NARRATIVE: CASE EVENT DATE: 201809
